FAERS Safety Report 7798424-8 (Version None)
Quarter: 2011Q4

REPORT INFORMATION
  Report Type: 
  Country: None (occurrence: None)
  Receive Date: 20111005
  Receipt Date: 20110928
  Transmission Date: 20120403
  Serious: Yes (Hospitalization, Disabling)
  Sender: FDA-Public Use
  Company Number: US-MYLANLABS-2007S1004080

PATIENT
  Sex: Female

DRUGS (1)
  1. HALOPERIDOL [Suspect]
     Indication: NERVOUSNESS
     Route: 048
     Dates: start: 20050620

REACTIONS (5)
  - DYSARTHRIA [None]
  - EXTRAPYRAMIDAL DISORDER [None]
  - DYSTONIA [None]
  - PROTRUSION TONGUE [None]
  - ATAXIA [None]
